FAERS Safety Report 21267633 (Version 1)
Quarter: 2022Q3

REPORT INFORMATION
  Report Type: Spontaneous
  Country: FR (occurrence: FR)
  Receive Date: 20220829
  Receipt Date: 20220829
  Transmission Date: 20221026
  Serious: Yes (Hospitalization)
  Sender: FDA-Public Use
  Company Number: None

PATIENT
  Age: 45 Year
  Sex: Female
  Weight: 68 kg

DRUGS (2)
  1. LANSOPRAZOLE [Suspect]
     Active Substance: LANSOPRAZOLE
     Indication: Poisoning deliberate
     Dosage: 180 MILLIGRAM, QD
     Route: 048
     Dates: start: 20220412, end: 20220412
  2. PROPRANOLOL [Suspect]
     Active Substance: PROPRANOLOL HYDROCHLORIDE
     Indication: Poisoning deliberate
     Dosage: 600 MILLIGRAM, QD
     Route: 048
     Dates: start: 20220412, end: 20220412

REACTIONS (2)
  - Hypotension [Recovered/Resolved]
  - Toxicity to various agents [Recovered/Resolved]
